FAERS Safety Report 5546419-7 (Version None)
Quarter: 2007Q4

REPORT INFORMATION
  Report Type: 
  Country: None (occurrence: None)
  Receive Date: 20071206
  Receipt Date: 20071206
  Transmission Date: 20080405
  Serious: Yes (Hospitalization)
  Sender: FDA-Public Use
  Company Number: None

PATIENT
  Age: 65 Year
  Sex: Female
  Weight: 75.7 kg

DRUGS (3)
  1. OMEPRAZOLE [Suspect]
     Indication: ABDOMINAL DISTENSION
     Dosage: 20 MG BID PO
     Route: 048
     Dates: start: 20071113, end: 20071204
  2. OMEPRAZOLE [Suspect]
     Indication: GASTROOESOPHAGEAL REFLUX DISEASE
     Dosage: 20 MG BID PO
     Route: 048
     Dates: start: 20071113, end: 20071204
  3. OMEPRAZOLE [Suspect]
     Indication: IMPAIRED GASTRIC EMPTYING
     Dosage: 20 MG BID PO
     Route: 048
     Dates: start: 20071113, end: 20071204

REACTIONS (4)
  - CONFUSIONAL STATE [None]
  - DYSARTHRIA [None]
  - GAIT DISTURBANCE [None]
  - MENTAL STATUS CHANGES [None]
